FAERS Safety Report 23037020 (Version 5)
Quarter: 2024Q1

REPORT INFORMATION
  Report Type: Report from Study
  Country: US (occurrence: US)
  Receive Date: 20231006
  Receipt Date: 20240213
  Transmission Date: 20240410
  Serious: Yes (Other)
  Sender: FDA-Public Use
  Company Number: US-002147023-NVSC2023US213993

PATIENT
  Age: 48 Year
  Sex: Female

DRUGS (3)
  1. KESIMPTA [Suspect]
     Active Substance: OFATUMUMAB
     Indication: Multiple sclerosis
     Dosage: UNK UNK, QW
     Route: 065
     Dates: start: 20230923
  2. KESIMPTA [Suspect]
     Active Substance: OFATUMUMAB
     Dosage: UNK, SECOND INJECTION
     Route: 065
  3. KESIMPTA [Suspect]
     Active Substance: OFATUMUMAB
     Dosage: 20 MG, QMO
     Route: 058

REACTIONS (24)
  - Multiple sclerosis relapse [Unknown]
  - Influenza like illness [Unknown]
  - Chills [Unknown]
  - Headache [Unknown]
  - Pain [Unknown]
  - Fatigue [Unknown]
  - Anxiety [Unknown]
  - Poor quality sleep [Unknown]
  - Memory impairment [Unknown]
  - Pruritus [Unknown]
  - Arthralgia [Unknown]
  - Anosmia [Unknown]
  - Ageusia [Unknown]
  - COVID-19 [Unknown]
  - Decreased appetite [Unknown]
  - Weight increased [Unknown]
  - Nausea [Unknown]
  - Muscular weakness [Unknown]
  - Asthenia [Unknown]
  - Pain in extremity [Unknown]
  - Blood glucose decreased [Unknown]
  - Cognitive disorder [Unknown]
  - Menopause [Unknown]
  - Therapeutic product effect decreased [Unknown]

NARRATIVE: CASE EVENT DATE: 20230924
